FAERS Safety Report 5098385-9 (Version None)
Quarter: 2006Q3

REPORT INFORMATION
  Report Type: 
  Country: None (occurrence: None)
  Receive Date: 20060906
  Receipt Date: 20060109
  Transmission Date: 20061208
  Serious: No
  Sender: FDA-Public Use
  Company Number: US-GLAXOSMITHKLINE-A0588338A

PATIENT
  Age: 63 Year
  Sex: Female

DRUGS (8)
  1. REQUIP [Suspect]
     Indication: RESTLESS LEGS SYNDROME
     Dosage: .25MG TWICE PER DAY
     Route: 048
     Dates: start: 20051201
  2. TRAZODONE HCL [Concomitant]
  3. CELEXA [Concomitant]
  4. SYNTHROID [Concomitant]
  5. ESTROGENS SOL/INJ [Concomitant]
  6. LIPITOR [Concomitant]
  7. MULTI-VITAMIN [Concomitant]
  8. VITAMIN E [Concomitant]

REACTIONS (4)
  - AGITATION [None]
  - DRUG INEFFECTIVE [None]
  - EUPHORIC MOOD [None]
  - RESTLESSNESS [None]
